FAERS Safety Report 16175682 (Version 1)
Quarter: 2019Q2

REPORT INFORMATION
  Report Type: Spontaneous
  Country: US (occurrence: US)
  Receive Date: 20190409
  Receipt Date: 20190409
  Transmission Date: 20190711
  Serious: No
  Sender: FDA-Public Use
  Company Number: US-TEVA-2019-US-1024012

PATIENT

DRUGS (1)
  1. ADRUCIL [Suspect]
     Active Substance: FLUOROURACIL
     Dosage: DOSE STRENGTH:  50 MG/ML, 5 GM
     Route: 065

REACTIONS (2)
  - Wrong technique in product usage process [Unknown]
  - Product deposit [Unknown]

NARRATIVE: CASE EVENT DATE: 20190305
